FAERS Safety Report 5468570-2 (Version None)
Quarter: 2007Q3

REPORT INFORMATION
  Report Type: 
  Country: None (occurrence: None)
  Receive Date: 20070926
  Receipt Date: 20070918
  Transmission Date: 20080115
  Serious: Yes (Life-Threatening)
  Sender: FDA-Public Use
  Company Number: JP-BAYER-200710628BYL

PATIENT
  Age: 85 Year
  Sex: Female

DRUGS (6)
  1. ADALAT [Suspect]
     Indication: ESSENTIAL HYPERTENSION
     Dosage: TOTAL DAILY DOSE: 20 MG  UNIT DOSE: 20 MG
     Route: 048
     Dates: start: 20070829, end: 20070831
  2. ARTIST [Concomitant]
     Dosage: UNIT DOSE: 10 MG
     Route: 048
     Dates: start: 20070730, end: 20070831
  3. NORVASC [Concomitant]
     Route: 048
  4. THYRADIN [Concomitant]
     Dosage: TOTAL DAILY DOSE: 50 ?G  UNIT DOSE: 25 ?G
     Route: 048
  5. LASIX [Concomitant]
     Dosage: TOTAL DAILY DOSE: 40 MG  UNIT DOSE: 40 MG
     Route: 048
  6. ALDACTONE [Concomitant]
     Dosage: TOTAL DAILY DOSE: 50 MG  UNIT DOSE: 25 MG
     Route: 048

REACTIONS (4)
  - BRADYCARDIA [None]
  - HYPERKALAEMIA [None]
  - RENAL FAILURE ACUTE [None]
  - SHOCK [None]
